FAERS Safety Report 6806387-4 (Version None)
Quarter: 2010Q2

REPORT INFORMATION
  Report Type: 
  Country: None (occurrence: None)
  Receive Date: 20100629
  Receipt Date: 20080221
  Transmission Date: 20101027
  Serious: Yes (Other)
  Sender: FDA-Public Use
  Company Number: US-PFIZER INC-2008017443

PATIENT
  Sex: Male
  Weight: 75 kg

DRUGS (3)
  1. VIAGRA [Suspect]
     Indication: ERECTILE DYSFUNCTION
     Route: 048
     Dates: start: 20080101, end: 20080101
  2. PREDNISONE [Concomitant]
  3. TOPROL-XL [Concomitant]

REACTIONS (1)
  - BLOOD PRESSURE INCREASED [None]
